FAERS Safety Report 10005963 (Version 1)
Quarter: 2014Q1

REPORT INFORMATION
  Report Type: Spontaneous
  Country: CA (occurrence: CA)
  Receive Date: 20140313
  Receipt Date: 20140313
  Transmission Date: 20141002
  Serious: Yes (Other)
  Sender: FDA-Public Use
  Company Number: CA-BAYER-2014-033125

PATIENT
  Age: 17 Year
  Sex: Female
  Weight: 49.89 kg

DRUGS (1)
  1. YAZ [Suspect]
     Dosage: 1 DF, QD
     Route: 048

REACTIONS (9)
  - Asthenia [Unknown]
  - Back pain [Unknown]
  - Chest pain [Unknown]
  - Depressed mood [Unknown]
  - Dizziness [Unknown]
  - Dyspnoea [Unknown]
  - Migraine [Unknown]
  - Vaginal haemorrhage [Unknown]
  - Vomiting [Unknown]
